FAERS Safety Report 24049708 (Version 1)
Quarter: 2024Q3

REPORT INFORMATION
  Report Type: Spontaneous
  Country: US (occurrence: US)
  Receive Date: 20240704
  Receipt Date: 20240704
  Transmission Date: 20241017
  Serious: Yes (Life-Threatening, Hospitalization, Other)
  Sender: RANBAXY
  Company Number: US-SUN PHARMACEUTICAL INDUSTRIES LTD-2024R1-454464

PATIENT
  Age: 43 Year
  Sex: Male

DRUGS (1)
  1. METHOTREXATE [Suspect]
     Active Substance: METHOTREXATE
     Indication: Psoriasis
     Dosage: UNK
     Route: 065

REACTIONS (8)
  - Accidental overdose [Unknown]
  - Hypotension [Unknown]
  - Enterococcal infection [Unknown]
  - Renal failure [Unknown]
  - Respiratory failure [Unknown]
  - Staphylococcal bacteraemia [Unknown]
  - Septic shock [Unknown]
  - Tachycardia [Unknown]
